FAERS Safety Report 25084856 (Version 3)
Quarter: 2025Q3

REPORT INFORMATION
  Report Type: Report from Study
  Country: US (occurrence: US)
  Receive Date: 20250317
  Receipt Date: 20250925
  Transmission Date: 20251021
  Serious: Yes (Other)
  Sender: ALEXION PHARMACEUTICALS
  Company Number: US-AstraZeneca-CH-00825238A

PATIENT
  Sex: Female

DRUGS (1)
  1. ULTOMIRIS [Suspect]
     Active Substance: RAVULIZUMAB-CWVZ
     Indication: Myasthenia gravis
     Route: 065

REACTIONS (8)
  - Myasthenia gravis [Unknown]
  - Systemic lupus erythematosus [Unknown]
  - Concussion [Unknown]
  - Fatigue [Unknown]
  - Pain [Unknown]
  - Fibromyalgia [Unknown]
  - Influenza [Unknown]
  - Headache [Unknown]

NARRATIVE: CASE EVENT DATE: 20240101
